FAERS Safety Report 7877760-0 (Version None)
Quarter: 2011Q4

REPORT INFORMATION
  Report Type: 
  Country: None (occurrence: None)
  Receive Date: 20111031
  Receipt Date: 20111031
  Transmission Date: 20120403
  Serious: Yes (Hospitalization)
  Sender: FDA-Public Use
  Company Number: None

PATIENT
  Sex: Male
  Weight: 32 kg

DRUGS (2)
  1. ALPHANATE [Suspect]
     Indication: HAEMOPHILIA
     Dosage: 3260 UNITS ALONG WITH LINE 2
     Route: 040
     Dates: start: 20111025, end: 20111028
  2. ALPHANATE [Concomitant]
     Dosage: 1550 UNITS ALONG WITH LINE 1
     Route: 040

REACTIONS (1)
  - ANAPHYLACTIC REACTION [None]
